FAERS Safety Report 7888885-8 (Version None)
Quarter: 2011Q4

REPORT INFORMATION
  Report Type: 
  Country: None (occurrence: None)
  Receive Date: 20111031
  Receipt Date: 20111028
  Transmission Date: 20120403
  Serious: Yes (Other)
  Sender: FDA-Public Use
  Company Number: 2011SP049005

PATIENT
  Sex: Female

DRUGS (1)
  1. PEGATRON (PEGYLATED INTERFERON ALFA-2B W/RIBAVIRIN) [Suspect]
     Indication: HEPATITIS C

REACTIONS (9)
  - HYPERTHYROIDISM [None]
  - FATIGUE [None]
  - MALAISE [None]
  - VOMITING [None]
  - CHILLS [None]
  - DIARRHOEA [None]
  - INFLUENZA LIKE ILLNESS [None]
  - EPISTAXIS [None]
  - NASAL DRYNESS [None]
